FAERS Safety Report 17360498 (Version 1)
Quarter: 2020Q1

REPORT INFORMATION
  Report Type: Spontaneous
  Country: US (occurrence: US)
  Receive Date: 20200131
  Receipt Date: 20200131
  Transmission Date: 20200409
  Serious: Yes (Other)
  Sender: FDA-Public Use
  Company Number: None

PATIENT
  Age: 71 Year
  Sex: Male
  Weight: 77.4 kg

DRUGS (10)
  1. PHENYTOIN SODIUM 100MG EXT CAPSULES [Concomitant]
  2. VITAMIN D [Concomitant]
     Active Substance: VITAMIN D NOS
  3. MONTELUKAST [Concomitant]
     Active Substance: MONTELUKAST SODIUM
  4. LEVOTHYROXINE 0.112MG [Concomitant]
  5. WARFARIN SOD 7.5MG TABLET (YELLOW) GENERIC FOR COUMADIN [Concomitant]
     Active Substance: WARFARIN SODIUM
  6. TAMSULOSIN 0.4MG [Concomitant]
     Active Substance: TAMSULOSIN
  7. HYDROCHLOROTHIAZIDE 25MG [Concomitant]
     Active Substance: HYDROCHLOROTHIAZIDE
  8. EZETIMIBE-SIMVASTATIN 10-80 [Concomitant]
  9. FLUOROURACIL 5^ [Suspect]
     Active Substance: FLUOROURACIL
     Indication: PRECANCEROUS LESION
     Route: 062
     Dates: start: 20200103
  10. LOSARTAN 100MG [Concomitant]
     Active Substance: LOSARTAN

REACTIONS (4)
  - Ocular hyperaemia [None]
  - Thermal burn [None]
  - Tongue discomfort [None]
  - Oral discomfort [None]

NARRATIVE: CASE EVENT DATE: 20200103
